FAERS Safety Report 6233771-2 (Version None)
Quarter: 2009Q2

REPORT INFORMATION
  Report Type: 
  Country: None (occurrence: None)
  Receive Date: 20090618
  Receipt Date: 20070507
  Transmission Date: 20091009
  Serious: Yes (Other)
  Sender: FDA-Public Use
  Company Number: US-ASTRAZENECA-2006UW11146

PATIENT
  Age: 13340 Day
  Sex: Female
  Weight: 115.2 kg

DRUGS (7)
  1. SEROQUEL [Suspect]
     Indication: DEPRESSION
     Dosage: 25 TO 50 MG AT NIGHT
     Route: 048
     Dates: start: 20030219, end: 20040226
  2. SEROQUEL [Suspect]
     Indication: SLEEP DISORDER
     Dosage: 25 TO 50 MG AT NIGHT
     Route: 048
     Dates: start: 20030219, end: 20040226
  3. ZYPREXA [Concomitant]
  4. ZOLOFT [Concomitant]
     Route: 048
     Dates: start: 20030219
  5. LISINOPRIL [Concomitant]
     Dosage: 10
     Dates: start: 20030320
  6. METFORMIN HYDROCHLORIDE [Concomitant]
     Dosage: 100
     Dates: start: 20030320
  7. WELLBUTRIN SR [Concomitant]
     Dosage: 100, 300 MG IN MORNING
     Dates: start: 20030320

REACTIONS (4)
  - DIABETES MELLITUS [None]
  - DIABETIC NEUROPATHY [None]
  - TYPE 1 DIABETES MELLITUS [None]
  - TYPE 2 DIABETES MELLITUS [None]
